FAERS Safety Report 7714847-7 (Version None)
Quarter: 2011Q3

REPORT INFORMATION
  Report Type: 
  Country: None (occurrence: None)
  Receive Date: 20110822
  Receipt Date: 20110812
  Transmission Date: 20111222
  Serious: Yes (Other)
  Sender: FDA-Public Use
  Company Number: 201111026

PATIENT
  Sex: Female

DRUGS (5)
  1. CLONIDINE [Concomitant]
  2. LIORESAL [Suspect]
     Indication: MUSCLE SPASTICITY
     Dosage: 194.8 MCG, DAILY, INTRATHECAL
     Route: 037
  3. PRIALT [Concomitant]
  4. FENTANYL [Concomitant]
  5. MARCAINE [Concomitant]

REACTIONS (6)
  - GRANULOMA [None]
  - IMPLANT SITE MASS [None]
  - SPINAL CORD COMPRESSION [None]
  - SOFT TISSUE INFLAMMATION [None]
  - MUSCULAR WEAKNESS [None]
  - INFUSION SITE MASS [None]
